FAERS Safety Report 5782445-0 (Version None)
Quarter: 2008Q2

REPORT INFORMATION
  Report Type: 
  Country: None (occurrence: None)
  Receive Date: 20080623
  Receipt Date: 20080609
  Transmission Date: 20081010
  Serious: Yes (Other)
  Sender: FDA-Public Use
  Company Number: PHRM2008FR01529

PATIENT
  Age: 72 Year
  Sex: Female
  Weight: 94 kg

DRUGS (7)
  1. FEMARA [Suspect]
     Indication: BREAST CANCER
     Dosage: 2.5 MG/DAY
     Route: 048
     Dates: start: 20071009, end: 20080122
  2. VISKEN [Concomitant]
     Dosage: UNK
  3. MIANSERIN [Concomitant]
     Dosage: UNK
  4. CLOMIPRAMINE HCL [Concomitant]
     Dosage: UNK
  5. LORAZEPAM [Concomitant]
     Dosage: UNK
  6. ZOPICLONE [Concomitant]
     Dosage: UNK
  7. OGAST [Concomitant]
     Dosage: UNK

REACTIONS (4)
  - ALANINE AMINOTRANSFERASE INCREASED [None]
  - ASPARTATE AMINOTRANSFERASE INCREASED [None]
  - CYTOLYTIC HEPATITIS [None]
  - GAMMA-GLUTAMYLTRANSFERASE INCREASED [None]
